APPROVED DRUG PRODUCT: RUBRAMIN PC
Active Ingredient: CYANOCOBALAMIN
Strength: 0.1MG/ML
Dosage Form/Route: INJECTABLE;INJECTION
Application: N006799 | Product #002
Applicant: BRISTOL MYERS SQUIBB CO
Approved: Approved Prior to Jan 1, 1982 | RLD: No | RS: No | Type: DISCN